FAERS Safety Report 5521984-4 (Version None)
Quarter: 2007Q4

REPORT INFORMATION
  Report Type: 
  Country: None (occurrence: None)
  Receive Date: 20071120
  Receipt Date: 20070730
  Transmission Date: 20080405
  Serious: Yes (Hospitalization)
  Sender: FDA-Public Use
  Company Number: US-BRISTOL-MYERS SQUIBB COMPANY-13861141

PATIENT
  Age: 82 Year
  Sex: Male
  Weight: 91 kg

DRUGS (5)
  1. AVALIDE [Suspect]
     Indication: BLOOD PRESSURE INCREASED
  2. NORVASC [Concomitant]
  3. VYTORIN [Concomitant]
  4. PROTONIX [Concomitant]
  5. NITROGLYCERIN [Concomitant]

REACTIONS (1)
  - MYOCARDIAL INFARCTION [None]
